FAERS Safety Report 6517554-1 (Version None)
Quarter: 2009Q4

REPORT INFORMATION
  Report Type: 
  Country: None (occurrence: None)
  Receive Date: 20091224
  Receipt Date: 20091221
  Transmission Date: 20100525
  Serious: Yes (Death, Hospitalization)
  Sender: FDA-Public Use
  Company Number: AU-ROCHE-673868

PATIENT
  Sex: Female

DRUGS (7)
  1. PEG-INTERFERON ALFA 2A (RO 25-8310) [Suspect]
     Route: 058
     Dates: start: 20091021, end: 20091123
  2. RIBAVIRIN [Suspect]
     Route: 048
     Dates: start: 20091021, end: 20091123
  3. BLINDED ELTROMBOPAG [Suspect]
     Indication: THROMBOCYTOPENIA
     Dosage: DOSE BLINDED, FREQUENCY: DAILY
     Route: 048
     Dates: start: 20091022, end: 20091123
  4. ELTROMBOPAG [Suspect]
     Indication: THROMBOCYTOPENIA
     Route: 048
     Dates: start: 20090930, end: 20091021
  5. LACTULOSE [Concomitant]
  6. THIAMINE [Concomitant]
  7. VITAMIN K TAB [Concomitant]

REACTIONS (1)
  - HEPATIC FAILURE [None]
